FAERS Safety Report 6542957-9 (Version None)
Quarter: 2010Q1

REPORT INFORMATION
  Report Type: 
  Country: None (occurrence: None)
  Receive Date: 20100120
  Receipt Date: 20100105
  Transmission Date: 20100710
  Serious: Yes (Death)
  Sender: FDA-Public Use
  Company Number: US-TYCO HEALTHCARE/MALLINCKRODT-T201000054

PATIENT
  Age: 51 Year
  Sex: Female

DRUGS (8)
  1. FENTANYL [Suspect]
     Route: 048
  2. ACETAMINOPHEN AND HYDROCODONE BITARTRATE [Suspect]
     Route: 048
  3. ACETAMINOPHEN [Suspect]
     Route: 048
  4. DIAZEPAM [Suspect]
     Route: 048
  5. BENZODIAZEPINE DERIVATIVES [Suspect]
     Route: 048
  6. EPHEDRINE [Suspect]
     Route: 048
  7. MIDAZOLAM HCL [Suspect]
     Route: 048
  8. IBUPROFEN [Suspect]
     Route: 048

REACTIONS (1)
  - INTENTIONAL DRUG MISUSE [None]
